FAERS Safety Report 25425823 (Version 1)
Quarter: 2025Q2

REPORT INFORMATION
  Report Type: Report from Study
  Country: US (occurrence: US)
  Receive Date: 20250611
  Receipt Date: 20250611
  Transmission Date: 20250716
  Serious: Yes (Other)
  Sender: MALLINCKRODT
  Company Number: US-MALLINCKRODT-MNK202503353

PATIENT
  Sex: Female

DRUGS (2)
  1. CORTICOTROPIN [Suspect]
     Active Substance: CORTICOTROPIN
     Indication: Product used for unknown indication
  2. CORTICOTROPIN [Suspect]
     Active Substance: CORTICOTROPIN

REACTIONS (7)
  - Pneumonia [Unknown]
  - Nausea [Unknown]
  - Gastrointestinal disorder [Unknown]
  - Fatigue [Unknown]
  - Asthenia [Unknown]
  - Injection site bruising [Unknown]
  - Product use complaint [Unknown]
